FAERS Safety Report 6287574-3 (Version None)
Quarter: 2009Q3

REPORT INFORMATION
  Report Type: 
  Country: None (occurrence: None)
  Receive Date: 20090727
  Receipt Date: 20090714
  Transmission Date: 20100115
  Serious: Yes (Hospitalization, Other)
  Sender: FDA-Public Use
  Company Number: 2009AP002636

PATIENT
  Age: 45 Year
  Sex: Female

DRUGS (5)
  1. HALOPERIDOL [Suspect]
     Indication: AGITATION
     Dosage: 5 MG; IV
     Route: 042
  2. KETROLAC [Concomitant]
  3. MORPHINE [Concomitant]
  4. NALBUPHINE [Concomitant]
  5. GLYCERYL TRINITRATE [Concomitant]

REACTIONS (10)
  - ALTERED STATE OF CONSCIOUSNESS [None]
  - BLOOD CREATINE PHOSPHOKINASE INCREASED [None]
  - CARDIAC ARREST [None]
  - CORONARY ARTERY STENOSIS [None]
  - DRUG TOXICITY [None]
  - HYPOKALAEMIA [None]
  - SUPRAVENTRICULAR TACHYCARDIA [None]
  - VENTRICULAR DYSKINESIA [None]
  - VENTRICULAR EXTRASYSTOLES [None]
  - VENTRICULAR TACHYCARDIA [None]
